FAERS Safety Report 18315995 (Version 1)
Quarter: 2020Q3

REPORT INFORMATION
  Report Type: Report from Study
  Country: IT (occurrence: IT)
  Receive Date: 20200927
  Receipt Date: 20200927
  Transmission Date: 20201103
  Serious: Yes (Other)
  Sender: FDA-Public Use
  Company Number: IT-TEVA-2020-IT-1831818

PATIENT
  Age: 73 Year
  Sex: Female

DRUGS (15)
  1. ALLOPURINOL. [Concomitant]
     Active Substance: ALLOPURINOL
     Dosage: 150MG
  2. NATECAL D3 [Concomitant]
     Active Substance: CALCIUM CARBONATE\CHOLECALCIFEROL
     Dosage: 1 DF
  3. LASIX [Concomitant]
     Active Substance: FUROSEMIDE
     Dosage: 1 DF
  4. CHOLECOMB [Concomitant]
     Dosage: 1 DF
  5. RIVOTRIL [Concomitant]
     Active Substance: CLONAZEPAM
     Dosage: 1DF
  6. CARTEABAK  2% COLLIRIO, SOLUZIONE [Concomitant]
     Dosage: 1 GTT
  7. KARVEA [Concomitant]
     Active Substance: IRBESARTAN
     Dosage: 1 DF
  8. APIDRA [Concomitant]
     Active Substance: INSULIN GLULISINE
     Dosage: 1 DF
  9. ACETYLSALICYLIC ACID [Concomitant]
     Active Substance: ASPIRIN
     Dosage: 100MG
  10. TOUJEO [Concomitant]
     Active Substance: INSULIN GLARGINE
     Dosage: 1 DF
  11. FORXIGA 10 MG FILM?COATED TABLETS [Concomitant]
     Dosage: 1 DF
  12. FENTANYL. [Suspect]
     Active Substance: FENTANYL
     Indication: PAIN
     Dosage: 12MCG
     Route: 062
     Dates: start: 20200618, end: 20200620
  13. DILATREND [Concomitant]
     Active Substance: CARVEDILOL
     Dosage: 0.5 DF
  14. FERRO?GRAD [Concomitant]
     Active Substance: FERROUS SULFATE
     Dosage: 1 DF
  15. ESOMEPRAZOLE SODIUM. [Concomitant]
     Active Substance: ESOMEPRAZOLE SODIUM
     Dosage: 40MG

REACTIONS (3)
  - Nausea [Recovering/Resolving]
  - Vomiting [Recovering/Resolving]
  - Faecaloma [Recovering/Resolving]

NARRATIVE: CASE EVENT DATE: 20200619
